FAERS Safety Report 6569913-9 (Version None)
Quarter: 2010Q1

REPORT INFORMATION
  Report Type: 
  Country: None (occurrence: None)
  Receive Date: 20100204
  Receipt Date: 20100129
  Transmission Date: 20100710
  Serious: Yes (Hospitalization)
  Sender: FDA-Public Use
  Company Number: PHHO2009SE13802

PATIENT
  Sex: Male
  Weight: 79 kg

DRUGS (6)
  1. SANDIMMUNE [Suspect]
     Indication: RENAL TRANSPLANT
     Dosage: 300 MG
     Route: 048
     Dates: start: 20090901
  2. SANDIMMUNE [Suspect]
     Dosage: 125 + 100 MG
     Route: 048
     Dates: start: 20090901
  3. NO TREATMENT RECEIVED NOMED [Suspect]
  4. MYFORTIC [Concomitant]
     Indication: PROPHYLAXIS AGAINST TRANSPLANT REJECTION
     Dosage: 720 MG, BID
     Route: 048
     Dates: start: 20090901, end: 20091209
  5. MYFORTIC [Concomitant]
     Dosage: 360 MG, BID
     Route: 048
     Dates: start: 20091210
  6. PREDNISOLON [Concomitant]

REACTIONS (6)
  - BK VIRUS INFECTION [None]
  - BLOOD CREATININE INCREASED [None]
  - CYTOMEGALOVIRUS INFECTION [None]
  - HYDRONEPHROSIS [None]
  - INCISIONAL DRAINAGE [None]
  - LYMPHOCELE [None]
